FAERS Safety Report 10925054 (Version 2)
Quarter: 2015Q2

REPORT INFORMATION
  Report Type: Spontaneous
  Country: US (occurrence: US)
  Receive Date: 20150318
  Receipt Date: 20150524
  Transmission Date: 20150821
  Serious: No
  Sender: FDA-Public Use
  Company Number: US-JNJFOC-20130316435

PATIENT
  Sex: Male
  Weight: 75.3 kg

DRUGS (1)
  1. KETOCONAZOLE. [Suspect]
     Active Substance: KETOCONAZOLE
     Indication: FUNGAL INFECTION
     Route: 061
     Dates: start: 201210, end: 20130104

REACTIONS (1)
  - Hair colour changes [Not Recovered/Not Resolved]
